FAERS Safety Report 4896944-7 (Version None)
Quarter: 2006Q1

REPORT INFORMATION
  Report Type: 
  Country: None (occurrence: None)
  Receive Date: 20060127
  Receipt Date: 20060106
  Transmission Date: 20060701
  Serious: Yes (Life-Threatening, Other)
  Sender: FDA-Public Use
  Company Number: GB200512003349

PATIENT
  Age: 58 Year
  Sex: Male
  Weight: 48 kg

DRUGS (16)
  1. XIGRIS [Suspect]
     Indication: SEPSIS
     Dosage: 38 MG, UNK, INTRAVENOUS
     Route: 042
     Dates: start: 20051219, end: 20051220
  2. CEFUROXIME [Concomitant]
  3. CLARITHROMYCIN [Concomitant]
  4. RANITIDINE [Concomitant]
  5. HYDROCORTISONE [Concomitant]
  6. CIPROFLOXACIN [Concomitant]
  7. SALBUTAMOL (SALBUTAMOL) [Concomitant]
  8. IPRATROPIUM BROMIDE [Concomitant]
  9. ACETAMINOPHEN [Concomitant]
  10. METOCLOPRAMIDE [Concomitant]
  11. MIDAZOLAM HCL [Concomitant]
  12. NORADRENALINE (NOREPINEPHRINE) [Concomitant]
  13. VASOPRESSIN AND ANALOGUES [Concomitant]
  14. PROPOFOL [Concomitant]
  15. FENTANYL [Concomitant]
  16. ACTRAPID INSULIN NOVO (INSULIN) [Concomitant]

REACTIONS (1)
  - ACUTE MYOCARDIAL INFARCTION [None]
